FAERS Safety Report 23080159 (Version 5)
Quarter: 2023Q4

REPORT INFORMATION
  Report Type: Report from Study
  Country: RU (occurrence: RU)
  Receive Date: 20231018
  Receipt Date: 20231215
  Transmission Date: 20240109
  Serious: Yes (Other)
  Sender: FDA-Public Use
  Company Number: RU-SA-SAC20231013000793

PATIENT
  Age: 38 Year
  Sex: Female
  Weight: 62 kg

DRUGS (2)
  1. ALEMTUZUMAB [Suspect]
     Active Substance: ALEMTUZUMAB
     Indication: Multiple sclerosis
     Dosage: NO 5
     Route: 042
     Dates: start: 201911, end: 201911
  2. ALEMTUZUMAB [Suspect]
     Active Substance: ALEMTUZUMAB
     Dosage: NO 3
     Route: 042
     Dates: start: 202104, end: 202104

REACTIONS (7)
  - Blindness [Unknown]
  - Graves^ disease [Unknown]
  - Hyperthyroidism [Unknown]
  - General physical health deterioration [Unknown]
  - Weight decreased [Unknown]
  - Tremor [Unknown]
  - Ultrasound thyroid abnormal [Not Recovered/Not Resolved]

NARRATIVE: CASE EVENT DATE: 20210101
